FAERS Safety Report 4321003-1 (Version None)
Quarter: 2004Q1

REPORT INFORMATION
  Report Type: 
  Country: None (occurrence: None)
  Receive Date: 20040303
  Receipt Date: 20030602
  Transmission Date: 20041129
  Serious: Yes (Life-Threatening)
  Sender: FDA-Public Use
  Company Number: 2003SA000115

PATIENT
  Age: 48 Year
  Sex: Male
  Weight: 98 kg

DRUGS (5)
  1. THYMOGLOBULIN [Suspect]
     Indication: PROPHYLAXIS AGAINST TRANSPLANT REJECTION
     Dosage: 1.25 MG/KG DAILY INTRAVENOUS
     Route: 042
     Dates: start: 20030522, end: 20030523
  2. METHYLPREDNISOLONE [Concomitant]
  3. MYCOPHENOLATE MOFETIL [Concomitant]
  4. CLEMASTINE [Concomitant]
  5. DIPYRONE TAB [Concomitant]

REACTIONS (7)
  - ANAPHYLACTIC REACTION [None]
  - BODY TEMPERATURE INCREASED [None]
  - HAEMODIALYSIS [None]
  - HYPOPERFUSION [None]
  - HYPOTENSION [None]
  - RENAL FAILURE ACUTE [None]
  - VASCULAR RESISTANCE SYSTEMIC DECREASED [None]
